APPROVED DRUG PRODUCT: BETAMETHASONE VALERATE
Active Ingredient: BETAMETHASONE VALERATE
Strength: 0.12%
Dosage Form/Route: AEROSOL, FOAM;TOPICAL
Application: A215832 | Product #001 | TE Code: AB
Applicant: ALEMBIC PHARMACEUTICALS LTD
Approved: Aug 22, 2024 | RLD: No | RS: No | Type: RX